FAERS Safety Report 19222512 (Version 2)
Quarter: 2021Q2

REPORT INFORMATION
  Report Type: Spontaneous
  Country: JP (occurrence: JP)
  Receive Date: 20210506
  Receipt Date: 20210513
  Transmission Date: 20210717
  Serious: Yes (Other)
  Sender: FDA-Public Use
  Company Number: JP-BRISTOL-MYERS SQUIBB COMPANY-BMS-2021-038410

PATIENT

DRUGS (2)
  1. YERVOY [Suspect]
     Active Substance: IPILIMUMAB
     Indication: NON-SMALL CELL LUNG CANCER
     Dosage: 1 MILLIGRAM/KILOGRAM, ADMINISTRATION DAYS: 1 DAY, Q6WK
     Route: 041
     Dates: start: 20210122, end: 20210122
  2. OPDIVO [Suspect]
     Active Substance: NIVOLUMAB
     Indication: NON-SMALL CELL LUNG CANCER
     Dosage: 360 MILLIGRAM, ADMINISTRATION DAYS: 1 DAY, Q3WK
     Route: 041
     Dates: start: 20210122, end: 20210122

REACTIONS (1)
  - Hepatic function abnormal [Unknown]
